FAERS Safety Report 12258591 (Version 1)
Quarter: 2016Q2

REPORT INFORMATION
  Report Type: Spontaneous
  Country: US (occurrence: US)
  Receive Date: 20160412
  Receipt Date: 20160412
  Transmission Date: 20160815
  Serious: No
  Sender: FDA-Public Use
  Company Number: US-SA-2015SA051542

PATIENT
  Age: 80 Year
  Sex: Female

DRUGS (2)
  1. ALLEGRA ALLERGY [Suspect]
     Active Substance: FEXOFENADINE HYDROCHLORIDE
     Indication: HYPERSENSITIVITY
     Dosage: PRODUCT START DATE WAS MENTIONED AS ONE WEEK AGO
     Route: 048
  2. TRIAMTERENE. [Concomitant]
     Active Substance: TRIAMTERENE
     Indication: DIURETIC THERAPY
     Dosage: TAKES TRIAMTERENE QD TWO OR THREE TIMES A WEEK.
     Route: 065

REACTIONS (2)
  - Extra dose administered [Unknown]
  - Therapeutic response decreased [Unknown]
